FAERS Safety Report 6807238-4 (Version None)
Quarter: 2010Q2

REPORT INFORMATION
  Report Type: 
  Country: None (occurrence: None)
  Receive Date: 20100629
  Receipt Date: 20080805
  Transmission Date: 20101027
  Serious: No
  Sender: FDA-Public Use
  Company Number: US-PFIZER INC-2008066093

PATIENT
  Sex: Male
  Weight: 84.09 kg

DRUGS (4)
  1. VIAGRA [Suspect]
     Indication: ERECTILE DYSFUNCTION
     Route: 048
     Dates: start: 20080601
  2. LOPID [Concomitant]
     Indication: BLOOD TRIGLYCERIDES INCREASED
  3. BENEMID [Concomitant]
     Indication: GOUT
  4. ACETYLSALICYLIC ACID [Concomitant]

REACTIONS (2)
  - ABDOMINAL DISCOMFORT [None]
  - DRUG INEFFECTIVE [None]
